FAERS Safety Report 8381049-3 (Version None)
Quarter: 2012Q2

REPORT INFORMATION
  Report Type: 
  Country: None (occurrence: None)
  Receive Date: 20120523
  Receipt Date: 20120518
  Transmission Date: 20120825
  Serious: Yes (Death)
  Sender: FDA-Public Use
  Company Number: VE-PFIZER INC-2012114288

PATIENT
  Age: 62 Year
  Sex: Male

DRUGS (2)
  1. ATENOLOL AND CHLORTHALIDONE [Concomitant]
     Indication: HYPERTENSION
     Dosage: 50 MG, UNK
     Route: 048
  2. LIPITOR [Suspect]
     Indication: ARTERIOSCLEROSIS
     Dosage: 80 MG, ONCE DAILY
     Route: 048

REACTIONS (1)
  - MYOCARDIAL INFARCTION [None]
